FAERS Safety Report 23920350 (Version 2)
Quarter: 2024Q3

REPORT INFORMATION
  Report Type: Spontaneous
  Country: DE (occurrence: DE)
  Receive Date: 20240530
  Receipt Date: 20240828
  Transmission Date: 20241016
  Serious: Yes (Hospitalization, Other)
  Sender: TEVA
  Company Number: None

PATIENT
  Age: 41 Year
  Sex: Female
  Weight: 75 kg

DRUGS (4)
  1. TERIFLUNOMIDE [Suspect]
     Active Substance: TERIFLUNOMIDE
     Indication: Multiple sclerosis
     Dosage: 14MG
     Route: 048
  2. AUBAGIO [Suspect]
     Active Substance: TERIFLUNOMIDE
     Indication: Multiple sclerosis
     Dosage: 0-0-1
     Route: 048
     Dates: end: 20240325
  3. LEVOTHYROXINE SODIUM [Concomitant]
     Active Substance: LEVOTHYROXINE SODIUM
     Indication: Product used for unknown indication
     Dosage: 1-0-0
     Route: 065
  4. CHOLECALCIFEROL [Concomitant]
     Active Substance: CHOLECALCIFEROL
     Indication: Product used for unknown indication
     Dosage: 0-0-1
     Route: 065

REACTIONS (11)
  - Streptococcal sepsis [Recovered/Resolved]
  - Bacterial infection [Unknown]
  - Multiple organ dysfunction syndrome [Unknown]
  - Acute respiratory distress syndrome [Unknown]
  - Septic cardiomyopathy [Unknown]
  - Pneumonia [Unknown]
  - Toxic shock syndrome streptococcal [Unknown]
  - Acute kidney injury [Unknown]
  - Metabolic acidosis [Unknown]
  - Oliguria [Unknown]
  - Hepatic failure [Unknown]

NARRATIVE: CASE EVENT DATE: 20240325
